FAERS Safety Report 7274754-3 (Version None)
Quarter: 2011Q1

REPORT INFORMATION
  Report Type: 
  Country: None (occurrence: None)
  Receive Date: 20110202
  Receipt Date: 20110202
  Transmission Date: 20110831
  Serious: No
  Sender: FDA-Public Use
  Company Number: None

PATIENT
  Age: 79 Year
  Sex: Female
  Weight: 52.1637 kg

DRUGS (1)
  1. RECLAST [Suspect]

REACTIONS (3)
  - FATIGUE [None]
  - MYALGIA [None]
  - DECREASED APPETITE [None]
